FAERS Safety Report 9656408 (Version 1)
Quarter: 2013Q4

REPORT INFORMATION
  Report Type: Report from Study
  Country: LB (occurrence: LB)
  Receive Date: 20131030
  Receipt Date: 20131030
  Transmission Date: 20140711
  Serious: Yes (Other)
  Sender: FDA-Public Use
  Company Number: LB-SA-2013SA108559

PATIENT
  Age: 56 Year
  Sex: Female

DRUGS (6)
  1. LANTUS SOLOSTAR [Suspect]
     Indication: DIABETES MELLITUS
     Dosage: DOSE:30 UNIT(S)
     Route: 058
     Dates: start: 2012
  2. DIAMICRON [Concomitant]
     Indication: DIABETES MELLITUS
     Route: 048
  3. GLUCOPHAGE [Concomitant]
     Indication: DIABETES MELLITUS
     Route: 048
  4. FLUDEX [Concomitant]
     Route: 048
  5. OTHER CHEMOTHERAPEUTICS [Concomitant]
  6. SOLOSTAR [Concomitant]
     Dates: start: 2012

REACTIONS (2)
  - Lymphoma [Recovering/Resolving]
  - Gastric ulcer [Recovering/Resolving]
